FAERS Safety Report 17754920 (Version 1)
Quarter: 2020Q2

REPORT INFORMATION
  Report Type: Spontaneous
  Country: PT (occurrence: PT)
  Receive Date: 20200507
  Receipt Date: 20200507
  Transmission Date: 20200714
  Serious: Yes (Other)
  Sender: FDA-Public Use
  Company Number: PT-HORIZON-VIM-0067-2020

PATIENT
  Age: 72 Year
  Sex: Female

DRUGS (2)
  1. DEXAMETHASONE. [Concomitant]
     Active Substance: DEXAMETHASONE
     Indication: PAIN
     Route: 014
  2. VIMOVO [Suspect]
     Active Substance: ESOMEPRAZOLE MAGNESIUM\NAPROXEN
     Indication: PAIN
     Dosage: 1 TABLET IN THE MORNING AND ANOTHER AT NIGHT, 2 DF DAILY
     Route: 048
     Dates: start: 20190523

REACTIONS (3)
  - Erythema [Unknown]
  - Feeling hot [Unknown]
  - Rash macular [Unknown]

NARRATIVE: CASE EVENT DATE: 20190523
